FAERS Safety Report 13442676 (Version 1)
Quarter: 2017Q2

REPORT INFORMATION
  Report Type: Spontaneous
  Country: US (occurrence: US)
  Receive Date: 20170413
  Receipt Date: 20170413
  Transmission Date: 20170830
  Serious: No
  Sender: FDA-Public Use
  Company Number: None

PATIENT
  Age: 49 Year
  Sex: Female

DRUGS (1)
  1. METFORMIN [Suspect]
     Active Substance: METFORMIN HYDROCHLORIDE
     Route: 048
     Dates: start: 20170322, end: 20170413

REACTIONS (5)
  - Vomiting [None]
  - Diarrhoea [None]
  - Nausea [None]
  - Product odour abnormal [None]
  - Product physical issue [None]

NARRATIVE: CASE EVENT DATE: 20170413
